FAERS Safety Report 14348529 (Version 1)
Quarter: 2018Q1

REPORT INFORMATION
  Report Type: Spontaneous
  Country: GB (occurrence: GB)
  Receive Date: 20180103
  Receipt Date: 20180103
  Transmission Date: 20180509
  Serious: Yes (Other)
  Sender: FDA-Public Use
  Company Number: GB-MYLANLABS-2017M1025235

PATIENT
  Age: 29 Year
  Sex: Female

DRUGS (19)
  1. CLOZARIL [Suspect]
     Active Substance: CLOZAPINE
     Dosage: 50 MG, PM
     Dates: start: 20170419, end: 201704
  2. LAMOTRIGINE. [Concomitant]
     Active Substance: LAMOTRIGINE
     Indication: MOOD SWINGS
     Dosage: 200 MG, BID
     Route: 048
  3. SALBUTAMOL [Concomitant]
     Active Substance: ALBUTEROL
     Indication: ASTHMA
     Dosage: UNK, PRN
  4. RISPERIDONE. [Suspect]
     Active Substance: RISPERIDONE
     Dosage: 8 MG, UNK
     Dates: start: 20170913, end: 201711
  5. LEVOTHYROXINE. [Concomitant]
     Active Substance: LEVOTHYROXINE
     Indication: HYPOTHYROIDISM
     Dosage: 175 ?G, QD
     Route: 048
  6. DOUBLEBASE [Concomitant]
     Active Substance: ISOPROPYL MYRISTATE\PARAFFIN
     Indication: PRODUCT USED FOR UNKNOWN INDICATION
     Dosage: UNK
  7. CLOZARIL [Suspect]
     Active Substance: CLOZAPINE
     Dosage: 37.5 MG, AM
     Dates: start: 20170419, end: 201704
  8. CETRABEN                           /01007601/ [Concomitant]
     Indication: PRODUCT USED FOR UNKNOWN INDICATION
  9. LURASIDONE [Concomitant]
     Active Substance: LURASIDONE
     Indication: PRODUCT USED FOR UNKNOWN INDICATION
     Dosage: UNK
  10. ADCAL D3 [Concomitant]
     Active Substance: CALCIUM CARBONATE\CHOLECALCIFEROL
     Indication: PRODUCT USED FOR UNKNOWN INDICATION
     Dosage: UNK
  11. CLOZARIL [Suspect]
     Active Substance: CLOZAPINE
     Indication: SCHIZOPHRENIA
     Dosage: UNK
     Route: 048
     Dates: start: 20170327
  12. COLGATE DURAPHAT [Concomitant]
     Active Substance: SODIUM FLUORIDE
     Indication: PRODUCT USED FOR UNKNOWN INDICATION
  13. SERETIDE [Concomitant]
     Active Substance: FLUTICASONE PROPIONATE\SALMETEROL XINAFOATE
     Indication: PRODUCT USED FOR UNKNOWN INDICATION
     Dosage: UNK
  14. RISPERIDONE. [Suspect]
     Active Substance: RISPERIDONE
     Indication: PRODUCT USED FOR UNKNOWN INDICATION
     Dosage: 4 MG, BID
  15. RISPERIDONE. [Suspect]
     Active Substance: RISPERIDONE
     Dosage: UNK
     Dates: start: 2017
  16. RANITIDINE. [Concomitant]
     Active Substance: RANITIDINE
     Indication: GASTROOESOPHAGEAL REFLUX DISEASE
     Dosage: 150 MG, BID
     Route: 048
  17. LORAZEPAM. [Concomitant]
     Active Substance: LORAZEPAM
     Indication: AGITATION
     Dosage: UNK UNK, PRN
  18. CLOZARIL [Suspect]
     Active Substance: CLOZAPINE
     Dosage: 50 MG, BID
     Dates: start: 20170418
  19. LURASIDONE [Concomitant]
     Active Substance: LURASIDONE
     Dosage: UNK

REACTIONS (3)
  - Electrocardiogram QT prolonged [Not Recovered/Not Resolved]
  - Schizophrenia [Unknown]
  - Trifascicular block [Unknown]

NARRATIVE: CASE EVENT DATE: 2017
